FAERS Safety Report 17749453 (Version 1)
Quarter: 2020Q2

REPORT INFORMATION
  Report Type: Report from Study
  Country: CA (occurrence: CA)
  Receive Date: 20200506
  Receipt Date: 20200506
  Transmission Date: 20200714
  Serious: Yes (Hospitalization)
  Sender: FDA-Public Use
  Company Number: CA-TAKEDA-2020TUS021273

PATIENT
  Age: 92 Year
  Sex: Male

DRUGS (15)
  1. OLESTYR [Concomitant]
     Active Substance: CHOLESTYRAMINE
     Indication: DIARRHOEA
     Dosage: 4 GRAM
     Route: 065
     Dates: start: 20160517
  2. DEXAMETHASONE. [Concomitant]
     Active Substance: DEXAMETHASONE
     Dosage: 20 MILLIGRAM, Q2WEEKS
     Route: 065
     Dates: start: 20171201
  3. ACYCLOVIR                          /00587301/ [Concomitant]
     Active Substance: ACYCLOVIR
     Dosage: 400 MILLIGRAM, BID
     Route: 065
     Dates: start: 20180716
  4. CYCLOPHOSPHAMIDE. [Concomitant]
     Active Substance: CYCLOPHOSPHAMIDE
     Dosage: 50 MILLIGRAM
     Route: 065
     Dates: start: 20180125
  5. IXAZOMIB [Suspect]
     Active Substance: IXAZOMIB
     Indication: PLASMA CELL MYELOMA
     Dosage: 2.3 MILLIGRAM
     Route: 048
     Dates: start: 20180716
  6. DEXAMETHASONE. [Concomitant]
     Active Substance: DEXAMETHASONE
     Dosage: 12 MILLIGRAM, 1/WEEK
     Route: 065
     Dates: start: 20180716
  7. EPREX [Concomitant]
     Active Substance: ERYTHROPOIETIN
     Dosage: UNK UNK, 1/WEEK
     Route: 065
     Dates: start: 20180215, end: 20180911
  8. CYCLOPHOSPHAMIDE. [Concomitant]
     Active Substance: CYCLOPHOSPHAMIDE
     Dosage: 50 MILLIGRAM
     Route: 065
     Dates: start: 20180421
  9. ASPIRIN                            /00002701/ [Concomitant]
     Active Substance: ASPIRIN
     Dosage: 81 MILLIGRAM, QD
     Route: 065
     Dates: start: 20171201, end: 20180712
  10. OLANZAPINE. [Concomitant]
     Active Substance: OLANZAPINE
     Indication: NAUSEA
     Dosage: 2.5 MILLIGRAM, BID
     Route: 065
     Dates: start: 20180716
  11. OLANZAPINE. [Concomitant]
     Active Substance: OLANZAPINE
     Indication: VOMITING
  12. ONDANSETRON [Concomitant]
     Active Substance: ONDANSETRON
     Dosage: 1
     Route: 065
     Dates: start: 20180716
  13. REVLIMID [Concomitant]
     Active Substance: LENALIDOMIDE
     Dosage: 5 MILLIGRAM
     Route: 065
     Dates: start: 20171229, end: 20180720
  14. ASPIRIN                            /00002701/ [Concomitant]
     Active Substance: ASPIRIN
     Dosage: 81 MILLIGRAM
     Route: 065
     Dates: start: 20150514
  15. OLESTYR [Concomitant]
     Active Substance: CHOLESTYRAMINE
     Indication: CONSTIPATION
     Dosage: UNK
     Route: 065
     Dates: start: 20160614, end: 20180809

REACTIONS (3)
  - Dementia [Unknown]
  - Transient ischaemic attack [Unknown]
  - Hyponatraemia [Unknown]

NARRATIVE: CASE EVENT DATE: 20200417
